FAERS Safety Report 17967458 (Version 1)
Quarter: 2020Q3

REPORT INFORMATION
  Report Type: Spontaneous
  Country: ES (occurrence: ES)
  Receive Date: 20200701
  Receipt Date: 20200701
  Transmission Date: 20201103
  Serious: Yes (Other)
  Sender: FDA-Public Use
  Company Number: ES-BAYER-2020-127481

PATIENT
  Age: 43 Year
  Sex: Male

DRUGS (7)
  1. KOGENATE [Suspect]
     Active Substance: ANTIHEMOPHILIC FACTOR, HUMAN RECOMBINANT
     Dosage: ON?DEMAND AND PROPHYLAXIS
     Route: 042
     Dates: start: 2016
  2. KOVALTRY [Suspect]
     Active Substance: ANTIHEMOPHILIC FACTOR, HUMAN RECOMBINANT
     Dosage: 1500 IU, BIW (TUESDAY?THURSDAY), PROPHYLAXIS
     Route: 042
     Dates: start: 2015, end: 2015
  3. JIVI [Concomitant]
     Active Substance: DAMOCTOCOG ALFA PEGOL
     Dosage: UNK
     Route: 042
     Dates: start: 201911, end: 2020
  4. KOVALTRY [Suspect]
     Active Substance: ANTIHEMOPHILIC FACTOR, HUMAN RECOMBINANT
     Dosage: PROPHYLAXIS
     Route: 042
     Dates: start: 2017, end: 201910
  5. KOVALTRY [Suspect]
     Active Substance: ANTIHEMOPHILIC FACTOR, HUMAN RECOMBINANT
     Dosage: 3 SUPPLEMENTARY DOSES OF KOVALTRY 1000 IU OVER 36 HOURS DUE TO BILATERAL FACIAL ECCHYMOSIS AFTER SUR
     Route: 042
     Dates: start: 201909, end: 201909
  6. KOVALTRY [Suspect]
     Active Substance: ANTIHEMOPHILIC FACTOR, HUMAN RECOMBINANT
     Dosage: 5 SUPPLEMENTARY DOSES OF KOVALTRY DUE TO POST?TRAUMATIC HAEMARTHROSIS OF RIGHT SHOULDER
     Route: 042
     Dates: start: 2016, end: 2016
  7. KOVALTRY [Suspect]
     Active Substance: ANTIHEMOPHILIC FACTOR, HUMAN RECOMBINANT
     Dosage: 3 SUPPLEMENTARY DOSES OF KOVALTRY DUE TO RECURRENT GUM BLEEDING
     Route: 042
     Dates: start: 2016, end: 2016

REACTIONS (5)
  - Traumatic haematoma [None]
  - Haemarthrosis [None]
  - Gingival bleeding [None]
  - Post procedural haematoma [Recovered/Resolved]
  - Jaw operation [None]

NARRATIVE: CASE EVENT DATE: 2016
